FAERS Safety Report 13098121 (Version 1)
Quarter: 2017Q1

REPORT INFORMATION
  Report Type: Spontaneous
  Country: JP (occurrence: JP)
  Receive Date: 20170109
  Receipt Date: 20170109
  Transmission Date: 20170428
  Serious: Yes (Other)
  Sender: FDA-Public Use
  Company Number: JP-VALIDUS PHARMACEUTICALS LLC-JP-2017VAL000019

PATIENT
  Age: 38 Year
  Sex: Male

DRUGS (6)
  1. PREDNISOLONE. [Suspect]
     Active Substance: PREDNISOLONE
     Indication: NEPHROTIC SYNDROME
     Dosage: 50 MG, QD
     Route: 048
  2. CALCIUM CARBONATE. [Suspect]
     Active Substance: CALCIUM CARBONATE
     Indication: HYPERPHOSPHATAEMIA
     Dosage: UNK
  3. WARFARIN SODIUM. [Suspect]
     Active Substance: WARFARIN SODIUM
     Indication: PRODUCT USED FOR UNKNOWN INDICATION
     Dosage: 2.5 MG, QD
  4. LANSOPRAZOLE. [Concomitant]
     Active Substance: LANSOPRAZOLE
     Indication: PRODUCT USED FOR UNKNOWN INDICATION
  5. FUROSEMIDE. [Suspect]
     Active Substance: FUROSEMIDE
     Indication: OEDEMA
     Dosage: UNK
  6. MIZORIBINE [Concomitant]
     Active Substance: MIZORIBINE
     Indication: PRODUCT USED FOR UNKNOWN INDICATION

REACTIONS (13)
  - Skin lesion [Recovered/Resolved]
  - Drug ineffective [Recovered/Resolved]
  - Skin discolouration [Recovered/Resolved]
  - Calcinosis [Recovered/Resolved]
  - Pain [Recovered/Resolved]
  - Generalised oedema [Recovered/Resolved]
  - N-telopeptide urine increased [Recovered/Resolved]
  - Skin ulcer [Recovered/Resolved]
  - Pseudomonas infection [Recovered/Resolved]
  - Tenderness [Recovered/Resolved]
  - Nodule [Recovered/Resolved]
  - Calciphylaxis [Recovered/Resolved]
  - Erythema [Recovered/Resolved]
